FAERS Safety Report 19453400 (Version 1)
Quarter: 2021Q2

REPORT INFORMATION
  Report Type: Spontaneous
  Country: US (occurrence: US)
  Receive Date: 20210623
  Receipt Date: 20210623
  Transmission Date: 20210717
  Serious: No
  Sender: FDA-Public Use
  Company Number: US-PFIZER INC-2015094287

PATIENT
  Age: 81 Year
  Sex: Female

DRUGS (1)
  1. PREMPRO [Suspect]
     Active Substance: ESTROGENS, CONJUGATED\MEDROXYPROGESTERONE ACETATE
     Dosage: UNK, DAILY [0.3 MG?1.5 MG/ 0.3 MG?15 MG TABLET]
     Route: 048

REACTIONS (2)
  - Pain in extremity [Unknown]
  - Product prescribing error [Unknown]
